FAERS Safety Report 8242915-2 (Version None)
Quarter: 2012Q1

REPORT INFORMATION
  Report Type: 
  Country: None (occurrence: None)
  Receive Date: 20120329
  Receipt Date: 20120329
  Transmission Date: 20120608
  Serious: Yes (Other)
  Sender: FDA-Public Use
  Company Number: None

PATIENT
  Age: 57 Year
  Sex: Female
  Weight: 82.553 kg

DRUGS (1)
  1. LEVOXYL [Suspect]
     Indication: HYPOTHYROIDISM
     Dosage: 88MCG
     Route: 048
     Dates: start: 20090812, end: 20091020

REACTIONS (5)
  - DRY SKIN [None]
  - PRODUCT SUBSTITUTION ISSUE [None]
  - ONYCHOCLASIS [None]
  - FATIGUE [None]
  - ALOPECIA [None]
